FAERS Safety Report 5301583-X (Version None)
Quarter: 2007Q2

REPORT INFORMATION
  Report Type: 
  Country: None (occurrence: None)
  Receive Date: 20070412
  Receipt Date: 20070327
  Transmission Date: 20071010
  Serious: Yes (Hospitalization)
  Sender: FDA-Public Use
  Company Number: DSA_29657_2007

PATIENT
  Age: 72 Year
  Sex: Female

DRUGS (7)
  1. ENALAPRIL MALEATE [Suspect]
     Dosage: DF UNK PO
     Route: 048
  2. METFORMIN [Suspect]
     Dosage: DF UNK UNK
  3. SIMVASTATIN [Suspect]
     Dosage: DF UNK PO
     Route: 048
  4. SALURES [Concomitant]
  5. IMPUGAN [Concomitant]
  6. GLYBURIDE [Concomitant]
  7. FOLACIN [Concomitant]

REACTIONS (5)
  - DEHYDRATION [None]
  - DIALYSIS [None]
  - DIARRHOEA [None]
  - DYSPNOEA [None]
  - METABOLIC ACIDOSIS [None]
